FAERS Safety Report 9906673 (Version 2)
Quarter: 2014Q1

REPORT INFORMATION
  Report Type: Report from Study
  Country: US (occurrence: US)
  Receive Date: 20140218
  Receipt Date: 20140305
  Transmission Date: 20141002
  Serious: Yes (Hospitalization)
  Sender: FDA-Public Use
  Company Number: US-ABBVIE-14P-163-1200419-00

PATIENT
  Age: 54 Year
  Sex: Male
  Weight: 77.18 kg

DRUGS (1)
  1. HUMIRA [Suspect]
     Indication: CROHN^S DISEASE
     Dates: start: 20131015

REACTIONS (6)
  - Fistula [Unknown]
  - Abdominal abscess [Unknown]
  - Abdominal abscess [Unknown]
  - Fistula [Unknown]
  - Streptococcal infection [Unknown]
  - Ileal stenosis [Unknown]
